FAERS Safety Report 19013125 (Version 1)
Quarter: 2021Q1

REPORT INFORMATION
  Report Type: Spontaneous
  Country: FR (occurrence: FR)
  Receive Date: 20210315
  Receipt Date: 20210315
  Transmission Date: 20210420
  Serious: Yes (Hospitalization)
  Sender: FDA-Public Use
  Company Number: FR-PFIZER INC-2021232146

PATIENT
  Age: 69 Year
  Sex: Male

DRUGS (2)
  1. MOXIFLOXACINE [Suspect]
     Active Substance: MOXIFLOXACIN
     Indication: PERITONITIS
     Dosage: 400 MG, 1X/DAY
     Route: 048
     Dates: start: 20190724
  2. VORICONAZOLE. [Suspect]
     Active Substance: VORICONAZOLE
     Indication: PERITONITIS
     Dosage: 600 MG, 1X/DAY
     Route: 048
     Dates: start: 20190204

REACTIONS (1)
  - Polyneuropathy [Not Recovered/Not Resolved]

NARRATIVE: CASE EVENT DATE: 20191125
